FAERS Safety Report 7445432-2 (Version None)
Quarter: 2011Q2

REPORT INFORMATION
  Report Type: 
  Country: None (occurrence: None)
  Receive Date: 20110429
  Receipt Date: 20110427
  Transmission Date: 20111010
  Serious: Yes (Other)
  Sender: FDA-Public Use
  Company Number: JP-PFIZER INC-2011067547

PATIENT
  Age: 68 Year
  Sex: Male
  Weight: 59 kg

DRUGS (12)
  1. CHAMPIX [Suspect]
     Indication: SMOKING CESSATION THERAPY
     Dosage: 0.5 MG, DAILY
     Route: 048
     Dates: start: 20110120, end: 20110122
  2. PLETAL [Concomitant]
     Dosage: 100 MG, 2X/DAY
     Dates: start: 20080603
  3. AROPHALM [Concomitant]
     Dosage: 0.5 MG, 3X/DAY
     Dates: start: 20080603, end: 20110317
  4. ADALAT CC [Concomitant]
     Dosage: 10 MG, 1X/DAY
     Dates: start: 20081212, end: 20110317
  5. CHAMPIX [Suspect]
     Dosage: 0.5 MG, 2X/DAY
     Route: 048
     Dates: start: 20110123, end: 20110126
  6. DIOVAN [Concomitant]
     Dosage: 80 MG, 1X/DAY
     Dates: start: 20081212
  7. LIPITOR [Concomitant]
     Dosage: 5 MG, 1X/DAY
     Dates: start: 20080709, end: 20110317
  8. CHAMPIX [Suspect]
     Dosage: 1 MG, 2X/DAY
     Route: 048
     Dates: start: 20110127, end: 20110128
  9. CHAMPIX [Suspect]
     Dosage: 1 MG, DAILY
     Route: 048
     Dates: start: 20110129, end: 20110217
  10. MYONAL [Concomitant]
     Dosage: 50 MG, 3X/DAY
     Dates: start: 20080603, end: 20110317
  11. ASPIRIN [Concomitant]
     Dosage: 100 MG, 1X/DAY
     Route: 048
     Dates: start: 20080603
  12. FAMOTIDINE D [Concomitant]
     Dosage: 10 MG, 1X/DAY
     Dates: start: 20080603, end: 20110317

REACTIONS (2)
  - PUSTULAR PSORIASIS [None]
  - MALAISE [None]
